FAERS Safety Report 16970415 (Version 1)
Quarter: 2019Q4

REPORT INFORMATION
  Report Type: Spontaneous
  Country: US (occurrence: US)
  Receive Date: 20191029
  Receipt Date: 20191029
  Transmission Date: 20200122
  Serious: No
  Sender: FDA-Public Use
  Company Number: US-GILEAD-2019-0434718

PATIENT
  Sex: Male

DRUGS (1)
  1. STRIBILD [Suspect]
     Active Substance: COBICISTAT\ELVITEGRAVIR\EMTRICITABINE\TENOFOVIR DISOPROXIL FUMARATE
     Indication: HIV INFECTION
     Dosage: UNK
     Route: 048
     Dates: start: 2015, end: 2019

REACTIONS (10)
  - Intervertebral disc protrusion [Unknown]
  - Economic problem [Not Recovered/Not Resolved]
  - Rotator cuff syndrome [Unknown]
  - Spinal stenosis [Unknown]
  - Pain [Not Recovered/Not Resolved]
  - Anxiety [Not Recovered/Not Resolved]
  - Back pain [Unknown]
  - Anhedonia [Not Recovered/Not Resolved]
  - Musculoskeletal pain [Unknown]
  - Emotional distress [Not Recovered/Not Resolved]
